FAERS Safety Report 6195631-5 (Version None)
Quarter: 2009Q2

REPORT INFORMATION
  Report Type: 
  Country: None (occurrence: None)
  Receive Date: 20090519
  Receipt Date: 20090507
  Transmission Date: 20091009
  Serious: Yes (Hospitalization, Other)
  Sender: FDA-Public Use
  Company Number: US-ELI_LILLY_AND_COMPANY-US200905002253

PATIENT
  Age: 84 Year
  Sex: Male

DRUGS (1)
  1. CYMBALTA [Suspect]
     Dosage: 30 MG, UNK
     Route: 048
     Dates: end: 20090427

REACTIONS (3)
  - CREATININE RENAL CLEARANCE [None]
  - GALLBLADDER OPERATION [None]
  - RENAL IMPAIRMENT [None]
